FAERS Safety Report 10097293 (Version 2)
Quarter: 2014Q2

REPORT INFORMATION
  Report Type: Spontaneous
  Country: FI (occurrence: FI)
  Receive Date: 20140422
  Receipt Date: 20140507
  Transmission Date: 20141212
  Serious: Yes (Disabling, Other)
  Sender: FDA-Public Use
  Company Number: FI-BRISTOL-MYERS SQUIBB COMPANY-20622858

PATIENT
  Age: 66 Year
  Sex: Male

DRUGS (9)
  1. BYDUREON [Suspect]
     Indication: DIABETES MELLITUS
     Dates: start: 20130610, end: 20131028
  2. PRIMASPAN [Concomitant]
     Indication: ARTERIOSCLEROSIS CORONARY ARTERY
     Dosage: TABS
  3. ENALAPRIL [Concomitant]
     Indication: ARTERIOSCLEROSIS CORONARY ARTERY
     Dosage: TABS
  4. ROSUVASTATIN [Concomitant]
     Indication: ARTERIOSCLEROSIS CORONARY ARTERY
     Dosage: TABS
  5. ORLOC [Concomitant]
     Indication: ARTERIOSCLEROSIS CORONARY ARTERY
     Dosage: 2-4TABS/DAY
  6. NEXIUM [Concomitant]
     Indication: PROPHYLAXIS
     Dosage: 1-2TABS/DAY
  7. DIFORMIN [Concomitant]
     Indication: DIABETES MELLITUS
     Dosage: TABS
  8. IMOVANE [Concomitant]
     Indication: INSOMNIA
     Dosage: TABS
  9. LANTUS [Concomitant]
     Indication: DIABETES MELLITUS

REACTIONS (11)
  - Heart rate increased [Recovered/Resolved]
  - Dyspnoea [Unknown]
  - General physical health deterioration [Unknown]
  - Abdominal pain upper [Unknown]
  - Oesophageal pain [Unknown]
  - Dysphagia [Unknown]
  - Anxiety [Unknown]
  - Chest pain [Unknown]
  - Dyspepsia [Unknown]
  - Pruritus [Recovered/Resolved]
  - Erythema [Recovered/Resolved]
